FAERS Safety Report 8942622 (Version 2)
Quarter: 2013Q1

REPORT INFORMATION
  Report Type: Spontaneous
  Country: DE (occurrence: DE)
  Receive Date: 20121204
  Receipt Date: 20130102
  Transmission Date: 20140127
  Serious: No
  Sender: FDA-Public Use
  Company Number: DE-BAYER-2012-123862

PATIENT
  Age: 84 Year
  Sex: Male
  Weight: 61 kg

DRUGS (2)
  1. ACETYLSALICYLIC ACID [Suspect]
     Dosage: UNK
  2. ASPIRIN PROTECT 100 [Suspect]
     Indication: CAROTID ARTERY STENOSIS
     Dosage: UNK
     Dates: start: 20120901, end: 20121112

REACTIONS (1)
  - Drug ineffective [Recovering/Resolving]
